FAERS Safety Report 6634388-8 (Version None)
Quarter: 2010Q1

REPORT INFORMATION
  Report Type: 
  Country: None (occurrence: None)
  Receive Date: 20100225
  Receipt Date: 20081114
  Transmission Date: 20100710
  Serious: Yes (Other)
  Sender: FDA-Public Use
  Company Number: US-JNJFOC-20081104069

PATIENT
  Age: 70 Year
  Sex: Female
  Weight: 83.0083 kg

DRUGS (8)
  1. IBUPROFEN [Suspect]
     Indication: DRUG USE FOR UNKNOWN INDICATION
     Dosage: TAKEN IN THE LATE 1970'S AND EARLY 1980'S
  2. MOTRIN IB [Suspect]
     Indication: JOINT SWELLING
     Dosage: 200 MG, 2 IN 1 TOTAL, ORAL
     Route: 048
     Dates: start: 20081001, end: 20081001
  3. PAMPRIN (PAMPRIN) [Concomitant]
  4. HYDROCHLOROTHIAZIDE [Concomitant]
  5. AMBIEN [Concomitant]
  6. MELATONIN (MELATONIN) [Concomitant]
  7. VITAMIN B (VITAMIN B NOS) [Concomitant]
  8. TYLENOL PM (GENERIC) (TYLENOL PM) [Concomitant]

REACTIONS (4)
  - DIARRHOEA [None]
  - GASTRIC DISORDER [None]
  - HYPERCHLORHYDRIA [None]
  - INTESTINAL HAEMORRHAGE [None]
